FAERS Safety Report 13539412 (Version 1)
Quarter: 2017Q2

REPORT INFORMATION
  Report Type: Spontaneous
  Country: US (occurrence: US)
  Receive Date: 20170511
  Receipt Date: 20170511
  Transmission Date: 20170830
  Serious: Yes (Other)
  Sender: FDA-Public Use
  Company Number: None

PATIENT
  Age: 86 Year
  Sex: Male

DRUGS (1)
  1. REVLIMID [Suspect]
     Active Substance: LENALIDOMIDE
     Indication: PLASMA CELL MYELOMA
     Dosage: 2 CYCLES??DAILY X21D/28D
     Route: 048

REACTIONS (4)
  - Delirium [None]
  - Hallucination [None]
  - Therapy cessation [None]
  - Confusional state [None]

NARRATIVE: CASE EVENT DATE: 20130104
